FAERS Safety Report 19178969 (Version 1)
Quarter: 2021Q2

REPORT INFORMATION
  Report Type: Spontaneous
  Country: US (occurrence: US)
  Receive Date: 20210423
  Receipt Date: 20210423
  Transmission Date: 20210717
  Serious: Yes (Other)
  Sender: FDA-Public Use
  Company Number: None

PATIENT
  Age: 38 Year
  Sex: Female
  Weight: 76.95 kg

DRUGS (6)
  1. TRANSEXAMIC ACID [Concomitant]
     Active Substance: TRANEXAMIC ACID
  2. ALBUTEROL INHALER [Concomitant]
     Active Substance: ALBUTEROL
  3. ORIAHNN [Suspect]
     Active Substance: ELAGOLIX SODIUM\ESTRADIOL\NORETHINDRONE
     Indication: HEAVY MENSTRUAL BLEEDING
     Route: 048
     Dates: start: 20210324, end: 20210412
  4. NAPROXEN 500MG [Concomitant]
     Active Substance: NAPROXEN
  5. ZADITOR [Concomitant]
     Active Substance: KETOTIFEN FUMARATE
  6. ORIAHNN [Suspect]
     Active Substance: ELAGOLIX SODIUM\ESTRADIOL\NORETHINDRONE
     Indication: DYSMENORRHOEA
     Route: 048
     Dates: start: 20210324, end: 20210412

REACTIONS (3)
  - Refusal of treatment by patient [None]
  - Abdominal pain upper [None]
  - Burn oral cavity [None]

NARRATIVE: CASE EVENT DATE: 20210414
